FAERS Safety Report 4759345-8 (Version None)
Quarter: 2005Q3

REPORT INFORMATION
  Report Type: 
  Country: None (occurrence: None)
  Receive Date: 20050831
  Receipt Date: 20050804
  Transmission Date: 20060218
  Serious: Yes (Other)
  Sender: FDA-Public Use
  Company Number: 2005111457

PATIENT
  Age: 74 Year
  Sex: Male

DRUGS (8)
  1. LYRICA [Suspect]
     Indication: ILL-DEFINED DISORDER
     Dosage: ORAL
     Route: 048
  2. NEBILET (NEBIVOLOL HYDROCHLORIDE) [Concomitant]
  3. NORVASC [Concomitant]
  4. SORTIS (ATORVASTATIN) [Concomitant]
  5. DIOVAN [Concomitant]
  6. SPIRIVA [Concomitant]
  7. ATMADISC (FLUTICASONE PROPIONATE, SALMETEROL XINAFOATE) [Concomitant]
  8. DONA S (GLUCOSAMINE SULFATE) [Concomitant]

REACTIONS (1)
  - HEART RATE DECREASED [None]
